FAERS Safety Report 6926337-X (Version None)
Quarter: 2010Q3

REPORT INFORMATION
  Report Type: 
  Country: None (occurrence: None)
  Receive Date: 20100816
  Receipt Date: 20100816
  Transmission Date: 20110219
  Serious: Yes (Death, Life-Threatening, Hospitalization, Other)
  Sender: FDA-Public Use
  Company Number: None

PATIENT
  Age: 18 Year
  Sex: Female
  Weight: 54.4316 kg

DRUGS (1)
  1. OXCARBAZEPINE [Suspect]
     Indication: BIPOLAR DISORDER
     Dosage: 150MG 1 AT BEDTIME PO
     Route: 048
     Dates: start: 20090506, end: 20090509

REACTIONS (1)
  - GRAND MAL CONVULSION [None]
